FAERS Safety Report 7282429-X (Version None)
Quarter: 2011Q1

REPORT INFORMATION
  Report Type: 
  Country: None (occurrence: None)
  Receive Date: 20110209
  Receipt Date: 20110207
  Transmission Date: 20110831
  Serious: Yes (Hospitalization)
  Sender: FDA-Public Use
  Company Number: IT-BRISTOL-MYERS SQUIBB COMPANY-15518186

PATIENT
  Age: 80 Year
  Sex: Male

DRUGS (7)
  1. CONGESCOR [Concomitant]
     Dosage: TABS
     Route: 048
  2. LANOXIN [Concomitant]
     Dosage: TABS
     Route: 048
  3. COVERSYL [Concomitant]
  4. LASIX [Concomitant]
     Dosage: FORMULATION:25MG ORAL TABS 1 DF:2 UNITS
     Route: 048
  5. SPIRIVA [Concomitant]
  6. TAPAZOLE [Concomitant]
     Dosage: 1 DF:2 UNITS FORMULATION:5MG ORAL TABS
     Route: 048
  7. COUMADIN [Suspect]
     Indication: PROPHYLAXIS
     Dosage: INTERRUPTED:09JAN2011 1 DF:1 UNIT
     Dates: start: 20071001

REACTIONS (7)
  - HEAD INJURY [None]
  - FACE INJURY [None]
  - PERIORBITAL HAEMATOMA [None]
  - INTERNATIONAL NORMALISED RATIO INCREASED [None]
  - SUBCUTANEOUS HAEMATOMA [None]
  - FALL [None]
  - FACIAL BONES FRACTURE [None]
